FAERS Safety Report 7310007-2 (Version None)
Quarter: 2011Q1

REPORT INFORMATION
  Report Type: 
  Country: None (occurrence: None)
  Receive Date: 20110224
  Receipt Date: 20110218
  Transmission Date: 20110831
  Serious: Yes (Other)
  Sender: FDA-Public Use
  Company Number: US-BAYER-2011-016359

PATIENT
  Sex: Female

DRUGS (2)
  1. YAZ [Suspect]
     Route: 048
  2. YASMIN [Suspect]
     Route: 048

REACTIONS (5)
  - GALLBLADDER DISORDER [None]
  - EMOTIONAL DISTRESS [None]
  - DEFORMITY [None]
  - DISABILITY [None]
  - PAIN [None]
